FAERS Safety Report 6622160-4 (Version None)
Quarter: 2010Q1

REPORT INFORMATION
  Report Type: 
  Country: None (occurrence: None)
  Receive Date: 20100303
  Receipt Date: 20100219
  Transmission Date: 20100710
  Serious: Yes (Death, Hospitalization)
  Sender: FDA-Public Use
  Company Number: 2009AC000079

PATIENT
  Age: 29 Year
  Sex: Female
  Weight: 125 kg

DRUGS (111)
  1. DIGOXIN [Suspect]
     Dosage: 0.125 MG;QD;PO
     Route: 048
  2. DIGOXIN [Suspect]
     Dosage: 0.25 MG;QD;PO
     Route: 048
     Dates: start: 20070901
  3. DIGOXIN [Suspect]
     Dosage: 0.25 MG;QD;PO
     Route: 048
     Dates: start: 19970129, end: 19970101
  4. DIGOXIN [Suspect]
     Dosage: 250 MCG;QD;PO
     Route: 048
     Dates: start: 20071001
  5. DIGOXIN [Suspect]
     Dosage: 0.125 MG;QD;PO
     Route: 048
     Dates: start: 20040701, end: 20060801
  6. DIGOXIN [Suspect]
     Dosage: 0.125 MG;QD;PO
     Route: 048
     Dates: start: 20080201, end: 20080901
  7. LASIX [Concomitant]
  8. K-DUR [Concomitant]
  9. SPIRONOLACTONE [Concomitant]
  10. TEQUIN [Concomitant]
  11. ROBITUSSIN [Concomitant]
  12. COREG [Concomitant]
  13. ZAROXOLYN [Concomitant]
  14. LIPITOR [Concomitant]
  15. METOPROLOL TARTRATE [Concomitant]
  16. LISINOPRIL [Concomitant]
  17. KAY CIEL DURA-TABS [Concomitant]
  18. PRINIVIL [Concomitant]
  19. CARDEDILOL [Concomitant]
  20. METOLAZONE [Concomitant]
  21. POTASSIUM CHLORIDE [Concomitant]
  22. ZOLPIDEM [Concomitant]
  23. DIPYRIDAMOLE [Concomitant]
  24. MAG OXIDE [Concomitant]
  25. PROPA-N/APAP [Concomitant]
  26. RAMIPRIL [Concomitant]
  27. COUMADIN [Concomitant]
  28. ........... [Concomitant]
  29. ................ [Concomitant]
  30. KLOR-CON [Concomitant]
  31. SPIRONOLACTONE [Concomitant]
  32. ................. [Concomitant]
  33. COUMADIN [Concomitant]
  34. CLAFORAN SHOT [Concomitant]
  35. KENALOG [Concomitant]
  36. .............. [Concomitant]
  37. COMBIVENT [Concomitant]
  38. CARVEDILOL [Concomitant]
  39. POTASSIUM [Concomitant]
  40. MULTI-VITAMINS [Concomitant]
  41. MERIDIA [Concomitant]
  42. CLOMID [Concomitant]
  43. XENICAL [Concomitant]
  44. AMIODARONE HCL [Concomitant]
  45. PRIMACOR [Concomitant]
  46. ASPIRIN [Concomitant]
  47. ALTACE [Concomitant]
  48. PROVERA [Concomitant]
  49. PROTONIX [Concomitant]
  50. VICODIN [Concomitant]
  51. TOPROL-XL [Concomitant]
  52. CEFUROXIME SODIUM [Concomitant]
  53. NAPROXEN [Concomitant]
  54. HYDROCODONE [Concomitant]
  55. CYCLOBENZAPRINE [Concomitant]
  56. SKELAXIN [Concomitant]
  57. ALLEGRA [Concomitant]
  58. ZITHROMAX [Concomitant]
  59. AMOXICILLIN [Concomitant]
  60. LEVAQUIN [Concomitant]
  61. MUCINEX [Concomitant]
  62. NASONEX [Concomitant]
  63. NITROGLYCERIN [Concomitant]
  64. AUGMENTIN [Concomitant]
  65. LORTAB [Concomitant]
  66. URSODEOSYCHOLIC ACID [Concomitant]
  67. BENADRYL [Concomitant]
  68. PHENERGAN HCL [Concomitant]
  69. HEPARIN [Concomitant]
  70. DEMEROL [Concomitant]
  71. NATRECOR [Concomitant]
  72. AMBIEN [Concomitant]
  73. XANEX [Concomitant]
  74. NESIRITIDE [Concomitant]
  75. ATIVAN [Concomitant]
  76. ZOFRAN [Concomitant]
  77. LOVENOX [Concomitant]
  78. ALBUTEROL [Concomitant]
  79. VICONDIN [Concomitant]
  80. HYDROCHLOROTHIAZIDE [Concomitant]
  81. BUMETANIDE [Concomitant]
  82. INSULIN [Concomitant]
  83. CEFEPIME [Concomitant]
  84. FLUOCONAZOLE [Concomitant]
  85. PERSANTINE [Concomitant]
  86. COLACE [Concomitant]
  87. INSPRA [Concomitant]
  88. TORSEMIDE [Concomitant]
  89. EPLERONONE [Concomitant]
  90. VASOPRESSIN [Concomitant]
  91. ISUPREL [Concomitant]
  92. EPINEPHRINE [Concomitant]
  93. LEVOPHED [Concomitant]
  94. SEROQUEL [Concomitant]
  95. FENTANYL [Concomitant]
  96. LACTULOSE [Concomitant]
  97. VERSED [Concomitant]
  98. VIAGRA [Concomitant]
  99. DILAUDID [Concomitant]
  100. FOLIC ACID [Concomitant]
  101. GLUTAMINE [Concomitant]
  102. ESCITALOPRAN [Concomitant]
  103. ARANESP [Concomitant]
  104. ONDANSETRON [Concomitant]
  105. ACETAMINOPHEN [Concomitant]
  106. VANCOMYCIN [Concomitant]
  107. MORPHINE [Concomitant]
  108. PREGABALIN [Concomitant]
  109. LIDODERM [Concomitant]
  110. ZOFRAN [Concomitant]
  111. KLONOPIN [Concomitant]

REACTIONS (47)
  - ATRIAL FIBRILLATION [None]
  - BACK PAIN [None]
  - BLADDER DISORDER [None]
  - BLOOD CHOLESTEROL INCREASED [None]
  - BLOOD GLUCOSE INCREASED [None]
  - BRONCHITIS [None]
  - BUNDLE BRANCH BLOCK LEFT [None]
  - CARDIAC FAILURE CONGESTIVE [None]
  - CARDIOGENIC SHOCK [None]
  - CEREBRAL ISCHAEMIA [None]
  - CHEST PAIN [None]
  - CHOLECYSTITIS [None]
  - CONDITION AGGRAVATED [None]
  - DEVICE FAILURE [None]
  - GANGRENE [None]
  - GENERAL PHYSICAL HEALTH DETERIORATION [None]
  - HAIR GROWTH ABNORMAL [None]
  - HEART TRANSPLANT [None]
  - INFERTILITY [None]
  - INFLUENZA LIKE ILLNESS [None]
  - INSOMNIA [None]
  - INTRACARDIAC THROMBUS [None]
  - LEG AMPUTATION [None]
  - MASS [None]
  - MEDIASTINITIS [None]
  - MENSTRUATION IRREGULAR [None]
  - MULTI-ORGAN FAILURE [None]
  - MULTIPLE INJURIES [None]
  - ORTHOPNOEA [None]
  - PALPITATIONS [None]
  - PNEUMONIA [None]
  - POLYCYSTIC OVARIES [None]
  - POST PROCEDURAL HAEMORRHAGE [None]
  - POSTOPERATIVE WOUND INFECTION [None]
  - PRESYNCOPE [None]
  - PULMONARY CONGESTION [None]
  - RENAL CANCER [None]
  - RENAL FAILURE [None]
  - SINUSITIS [None]
  - SLEEP APNOEA SYNDROME [None]
  - SUBDURAL HAEMORRHAGE [None]
  - SUPRAVENTRICULAR TACHYCARDIA [None]
  - TREATMENT NONCOMPLIANCE [None]
  - TUBERCULIN TEST POSITIVE [None]
  - UPPER RESPIRATORY TRACT INFECTION [None]
  - URINARY TRACT INFECTION [None]
  - UTERINE CANCER [None]
